FAERS Safety Report 13027156 (Version 1)
Quarter: 2016Q4

REPORT INFORMATION
  Report Type: Report from Study
  Country: None (occurrence: US)
  Receive Date: 20161214
  Receipt Date: 20161214
  Transmission Date: 20170207
  Serious: Yes (Other)
  Sender: FDA-Public Use
  Company Number: US-ABBVIE-16K-163-1802941-00

PATIENT
  Sex: Male

DRUGS (2)
  1. HUMIRA [Suspect]
     Active Substance: ADALIMUMAB
     Indication: RHEUMATOID ARTHRITIS
     Route: 058
     Dates: end: 2016
  2. HUMIRA [Suspect]
     Active Substance: ADALIMUMAB
     Route: 058
     Dates: start: 2016

REACTIONS (8)
  - Suture rupture [Unknown]
  - Fall [Unknown]
  - Arthritis bacterial [Unknown]
  - Skin mass [Not Recovered/Not Resolved]
  - Rotator cuff syndrome [Recovered/Resolved]
  - Muscle rupture [Recovered/Resolved]
  - Skin mass [Recovered/Resolved]
  - Dental implantation [Recovered/Resolved]

NARRATIVE: CASE EVENT DATE: 2016
